FAERS Safety Report 25073465 (Version 2)
Quarter: 2025Q2

REPORT INFORMATION
  Report Type: Spontaneous
  Country: US (occurrence: US)
  Receive Date: 20250313
  Receipt Date: 20250407
  Transmission Date: 20250717
  Serious: Yes (Life-Threatening, Hospitalization)
  Sender: TORRENT
  Company Number: US-MLMSERVICE-20250224-PI426132-00329-1

PATIENT
  Age: 75 Year
  Sex: Male

DRUGS (3)
  1. MINOCYCLINE [Suspect]
     Active Substance: MINOCYCLINE HYDROCHLORIDE
     Indication: Acinetobacter infection
     Route: 042
  2. POLYMYXIN B [Suspect]
     Active Substance: POLYMYXIN B
     Indication: Acinetobacter infection
     Route: 042
  3. VANCOMYCIN [Suspect]
     Active Substance: VANCOMYCIN
     Indication: Acinetobacter infection
     Route: 065

REACTIONS (2)
  - Acute kidney injury [Recovered/Resolved]
  - Renal impairment [Recovered/Resolved]
